FAERS Safety Report 7273269-6 (Version None)
Quarter: 2011Q1

REPORT INFORMATION
  Report Type: 
  Country: None (occurrence: None)
  Receive Date: 20110203
  Receipt Date: 20101109
  Transmission Date: 20110831
  Serious: No
  Sender: FDA-Public Use
  Company Number: US-ABBOTT-10P-163-0684508-00

PATIENT
  Sex: Female
  Weight: 52.21 kg

DRUGS (7)
  1. THYROID HERBAL - ENRGIGUE [Concomitant]
     Route: 048
     Dates: start: 20100801, end: 20101001
  2. THYROID HERBAL - ENRGIGUE [Concomitant]
     Indication: PHYTOTHERAPY
     Route: 048
     Dates: start: 20091001, end: 20100701
  3. ALPRAZOLAM [Concomitant]
     Indication: ANXIETY
     Route: 048
     Dates: start: 20090101, end: 20090101
  4. SYNTHROID [Suspect]
     Route: 048
     Dates: start: 20101011, end: 20101108
  5. ALPRAZOLAM [Concomitant]
     Route: 048
     Dates: start: 20101001
  6. SYNTHROID [Suspect]
     Indication: AUTOIMMUNE THYROIDITIS
     Dosage: 1/2 TABLET DAILY
     Route: 048
     Dates: start: 20100101
  7. SYNTHROID [Suspect]
     Dosage: 0.25
     Route: 048
     Dates: start: 20100501, end: 20100701

REACTIONS (11)
  - TREATMENT NONCOMPLIANCE [None]
  - ALOPECIA [None]
  - ANXIETY [None]
  - MEMORY IMPAIRMENT [None]
  - PALPITATIONS [None]
  - DRUG ADMINISTRATION ERROR [None]
  - TREMOR [None]
  - BLOOD THYROID STIMULATING HORMONE INCREASED [None]
  - DISTURBANCE IN ATTENTION [None]
  - MOOD SWINGS [None]
  - HYPOAESTHESIA [None]
